FAERS Safety Report 20125690 (Version 1)
Quarter: 2021Q4

REPORT INFORMATION
  Report Type: Spontaneous
  Country: US (occurrence: US)
  Receive Date: 20211129
  Receipt Date: 20211129
  Transmission Date: 20220304
  Serious: Yes (Other)
  Sender: FDA-Public Use
  Company Number: US-BAYER-2021A254884

PATIENT
  Age: 47 Year
  Sex: Female

DRUGS (1)
  1. ADEMPAS [Suspect]
     Active Substance: RIOCIGUAT
     Indication: Pulmonary arterial hypertension
     Dosage: 2 MG, TID
     Route: 048
     Dates: start: 20210308

REACTIONS (6)
  - Syncope [None]
  - Hypervolaemia [None]
  - Jugular vein distension [None]
  - Left ventricular end-diastolic pressure increased [None]
  - Pulmonary hypertension [None]
  - Oedema [None]
